FAERS Safety Report 12668351 (Version 4)
Quarter: 2017Q1

REPORT INFORMATION
  Report Type: Spontaneous
  Country: NL (occurrence: NL)
  Receive Date: 20160819
  Receipt Date: 20170222
  Transmission Date: 20170428
  Serious: Yes (Death, Hospitalization, Other)
  Sender: FDA-Public Use
  Company Number: NL-PFIZER INC-2015255903

PATIENT
  Age: 65 Year
  Sex: Male
  Weight: 73 kg

DRUGS (10)
  1. SOMAVERT [Suspect]
     Active Substance: PEGVISOMANT
     Dosage: 40 MG, 1X/ WEEK
     Route: 058
     Dates: start: 20120906, end: 20121227
  2. SOMAVERT [Suspect]
     Active Substance: PEGVISOMANT
     Indication: ACROMEGALY
     Dosage: 40 MG, 1X/WEEK
     Route: 058
     Dates: start: 20120831
  3. TESTOSTERON /00103101/ [Concomitant]
     Active Substance: TESTOSTERONE
     Dosage: 20 MG/G, 1X/DAY
     Route: 003
  4. METFORMIN [Concomitant]
     Active Substance: METFORMIN HYDROCHLORIDE
     Dosage: 500 MG, 1X/DAY
     Route: 048
  5. NOSCAPIN /00281701/ [Concomitant]
     Dosage: 15 MG, UNK
     Route: 048
  6. SOMAVERT [Suspect]
     Active Substance: PEGVISOMANT
     Dosage: 60 MG, 1X/WEEK
     Route: 058
     Dates: start: 20121228, end: 20130207
  7. SOMAVERT [Suspect]
     Active Substance: PEGVISOMANT
     Dosage: 60 MG, 2X/WEEK
     Route: 058
     Dates: start: 20130208
  8. SOMAVERT [Suspect]
     Active Substance: PEGVISOMANT
     Dosage: 60 MG, 2X/WEEK
     Route: 058
     Dates: start: 20150522, end: 20170131
  9. PANTOPRAZOL [Concomitant]
     Active Substance: PANTOPRAZOLE SODIUM
     Dosage: 40 MG, 1X/DAY
     Route: 048
  10. LANREOTIDE [Concomitant]
     Active Substance: LANREOTIDE
     Dosage: 0.4 ML, UNK

REACTIONS (6)
  - Bone disorder [Not Recovered/Not Resolved]
  - Death [Fatal]
  - Critical illness [Unknown]
  - Off label use [Unknown]
  - Lung disorder [Not Recovered/Not Resolved]
  - Fatigue [Unknown]

NARRATIVE: CASE EVENT DATE: 20120831
